FAERS Safety Report 9800809 (Version 2)
Quarter: 2014Q1

REPORT INFORMATION
  Report Type: Report from Study
  Country: FR (occurrence: FR)
  Receive Date: 20140107
  Receipt Date: 20140131
  Transmission Date: 20141002
  Serious: Yes (Other)
  Sender: FDA-Public Use
  Company Number: FR-ROCHE-1329709

PATIENT
  Sex: Female

DRUGS (13)
  1. RITUXIMAB [Suspect]
     Indication: RHEUMATOID ARTHRITIS
     Route: 041
     Dates: start: 20070911
  2. RITUXIMAB [Suspect]
     Route: 041
     Dates: start: 20070926
  3. RITUXIMAB [Suspect]
     Route: 041
     Dates: start: 20090629
  4. RITUXIMAB [Suspect]
     Route: 041
     Dates: start: 20090720
  5. RITUXIMAB [Suspect]
     Route: 041
     Dates: start: 20101014
  6. RITUXIMAB [Suspect]
     Route: 041
     Dates: start: 20101029
  7. RITUXIMAB [Suspect]
     Route: 041
     Dates: start: 20110504
  8. RITUXIMAB [Suspect]
     Route: 041
     Dates: start: 20110518
  9. RITUXIMAB [Suspect]
     Route: 041
     Dates: start: 20120120
  10. RITUXIMAB [Suspect]
     Route: 041
     Dates: start: 20120201
  11. RITUXIMAB [Suspect]
     Route: 041
     Dates: start: 20130115
  12. RITUXIMAB [Suspect]
     Route: 041
     Dates: start: 20130129
  13. CORTANCYL [Concomitant]

REACTIONS (2)
  - Rib fracture [Unknown]
  - Urinary tract infection [Not Recovered/Not Resolved]
